FAERS Safety Report 11410901 (Version 1)
Quarter: 2015Q3

REPORT INFORMATION
  Report Type: Spontaneous
  Country: US (occurrence: None)
  Receive Date: 20150820
  Receipt Date: 20150820
  Transmission Date: 20151125
  Serious: Yes (Life-Threatening, Hospitalization)
  Sender: FDA-Public Use
  Company Number: None

PATIENT
  Age: 6 Year
  Sex: Male
  Weight: 26.6 kg

DRUGS (9)
  1. MYCOPHENOLATE MOFETIL 500 MG [Concomitant]
  2. TACROLIMUS 2 MG [Concomitant]
  3. RITUXIMAB [Suspect]
     Active Substance: RITUXIMAB
     Indication: HEART TRANSPLANT REJECTION
     Route: 042
     Dates: start: 20150818, end: 20150818
  4. ENALAPRIL 5MG MYLAN [Concomitant]
     Active Substance: ENALAPRIL
  5. PLASMAPHERESIS BLOOD PACK UNIT [Concomitant]
     Active Substance: HUMAN PLASMA
  6. ONDANSETRON 2 MG/ML [Concomitant]
     Active Substance: ONDANSETRON
  7. FAMOTIDINE 20 MG OTC [Concomitant]
     Active Substance: FAMOTIDINE
  8. PREDNISOLONE 27 MG [Concomitant]
  9. ACETAMINOPHEN 384 MG/DIPHENHYDRAMINE 25 MG [Concomitant]

REACTIONS (5)
  - Infusion related reaction [None]
  - Vomiting [None]
  - Blood lactic acid increased [None]
  - Blood pressure fluctuation [None]
  - Blood pressure decreased [None]

NARRATIVE: CASE EVENT DATE: 20150818
